FAERS Safety Report 12616220 (Version 1)
Quarter: 2016Q3

REPORT INFORMATION
  Report Type: Report from Study
  Country: BR (occurrence: BR)
  Receive Date: 20160802
  Receipt Date: 20160802
  Transmission Date: 20161109
  Serious: Yes (Other)
  Sender: FDA-Public Use
  Company Number: PHHY2016BR105224

PATIENT
  Sex: Female
  Weight: 50 kg

DRUGS (1)
  1. EXJADE [Suspect]
     Active Substance: DEFERASIROX
     Indication: SICKLE CELL ANAEMIA
     Dosage: 30 MG/KG, QD (1500 MG: 3 TABLETS OF 500 MG)
     Route: 065

REACTIONS (5)
  - Anxiety [Unknown]
  - Fatigue [Unknown]
  - Angina pectoris [Unknown]
  - Anger [Unknown]
  - Memory impairment [Unknown]
